FAERS Safety Report 7078975-4 (Version None)
Quarter: 2010Q4

REPORT INFORMATION
  Report Type: 
  Country: None (occurrence: None)
  Receive Date: 20101021
  Receipt Date: 20101007
  Transmission Date: 20110411
  Serious: Yes (Other)
  Sender: FDA-Public Use
  Company Number: 1000015944

PATIENT
  Age: 62 Year
  Sex: Male
  Weight: 74.8 kg

DRUGS (2)
  1. ESCITALOPRAM [Suspect]
     Indication: ANXIETY
     Dosage: 10 MG (10 MG, 1 IN 1 D), ORAL; ORAL
     Route: 048
     Dates: start: 20070101, end: 20100101
  2. ESCITALOPRAM [Suspect]
     Indication: DEPRESSION
     Dosage: 10 MG (10 MG, 1 IN 1 D), ORAL; ORAL
     Route: 048
     Dates: start: 20070101, end: 20100101

REACTIONS (13)
  - ANGER [None]
  - ANXIETY [None]
  - COMPULSIONS [None]
  - CONDITION AGGRAVATED [None]
  - CONFUSIONAL STATE [None]
  - DEPENDENCE [None]
  - DIZZINESS [None]
  - INSOMNIA [None]
  - MANIA [None]
  - MARITAL PROBLEM [None]
  - PATHOLOGICAL GAMBLING [None]
  - SUICIDAL IDEATION [None]
  - WITHDRAWAL SYNDROME [None]
